FAERS Safety Report 5360156-3 (Version None)
Quarter: 2007Q2

REPORT INFORMATION
  Report Type: 
  Country: None (occurrence: None)
  Receive Date: 20070618
  Receipt Date: 20070611
  Transmission Date: 20071010
  Serious: Yes (Life-Threatening, Hospitalization)
  Sender: FDA-Public Use
  Company Number: PHRM2007FR01602

PATIENT
  Age: 50 Year
  Sex: Female

DRUGS (6)
  1. TEGRETOL [Suspect]
     Route: 048
     Dates: start: 20070301, end: 20070301
  2. MEPRONIZINE [Suspect]
     Route: 048
     Dates: start: 20070301, end: 20070301
  3. NOZINAN [Suspect]
     Route: 048
     Dates: start: 20070301, end: 20070301
  4. SERESTA [Suspect]
     Route: 048
     Dates: start: 20070301, end: 20070301
  5. MIANSERIN HYDROCHLORIDE [Suspect]
     Route: 048
     Dates: start: 20070301, end: 20070301
  6. THERALENE [Suspect]
     Route: 048
     Dates: start: 20070301, end: 20070301

REACTIONS (11)
  - AGITATION [None]
  - CIRCULATORY COLLAPSE [None]
  - COMA [None]
  - CONFUSIONAL STATE [None]
  - GLASGOW COMA SCALE ABNORMAL [None]
  - INTENTIONAL OVERDOSE [None]
  - LIFE SUPPORT [None]
  - LOSS OF CONSCIOUSNESS [None]
  - SUICIDE ATTEMPT [None]
  - TACHYCARDIA [None]
  - THERAPEUTIC AGENT TOXICITY [None]
